FAERS Safety Report 6477636-X (Version None)
Quarter: 2009Q4

REPORT INFORMATION
  Report Type: 
  Country: None (occurrence: None)
  Receive Date: 20091207
  Receipt Date: 20091127
  Transmission Date: 20100525
  Serious: Yes (Hospitalization, Disabling, Other)
  Sender: FDA-Public Use
  Company Number: AT-ABBOTT-09P-009-0598760-00

PATIENT
  Age: 49 Year
  Sex: Male
  Weight: 66 kg

DRUGS (10)
  1. KALETRA [Suspect]
     Indication: HIV INFECTION
     Route: 048
     Dates: start: 20030528
  2. HEPSERA [Suspect]
     Indication: HEPATITIS B
     Route: 048
     Dates: start: 20040526, end: 20060926
  3. HEPSERA [Suspect]
     Route: 048
     Dates: start: 20031125, end: 20040526
  4. PANTOPRAZOLE [Concomitant]
     Indication: PROPHYLAXIS AGAINST GASTROINTESTINAL ULCER
     Route: 048
     Dates: start: 20020515, end: 20080915
  5. ZOLEDRONIC ACID [Concomitant]
     Indication: OSTEOPOROSIS
     Dates: start: 20051126, end: 20071220
  6. ZOLEDRONIC ACID [Concomitant]
     Dates: start: 20050119, end: 20051128
  7. BACTRIM [Concomitant]
     Indication: ANTIFUNGAL PROPHYLAXIS
     Dates: start: 20031104, end: 20050830
  8. ALENDRONIC ACID [Concomitant]
     Indication: OSTEOPOROSIS
     Dosage: 10 MG DAILY
     Route: 048
     Dates: start: 20041210, end: 20050401
  9. CAL-D-VITA [Concomitant]
     Indication: DRUG USE FOR UNKNOWN INDICATION
     Dates: end: 20041201
  10. CALCITONIN [Concomitant]
     Indication: OSTEOPOROSIS
     Route: 045
     Dates: start: 20050113, end: 20050501

REACTIONS (10)
  - ACUTE MYOCARDIAL INFARCTION [None]
  - BACK PAIN [None]
  - CARDIOVASCULAR DISORDER [None]
  - GLOMERULAR FILTRATION RATE DECREASED [None]
  - OSTEOPOROSIS [None]
  - OVERDOSE [None]
  - PATHOLOGICAL FRACTURE [None]
  - PERIPHERAL ARTERIAL OCCLUSIVE DISEASE [None]
  - RENAL FAILURE CHRONIC [None]
  - SPINAL COMPRESSION FRACTURE [None]
